FAERS Safety Report 4785844-9 (Version None)
Quarter: 2005Q4

REPORT INFORMATION
  Report Type: 
  Country: None (occurrence: None)
  Receive Date: 20051003
  Receipt Date: 20050914
  Transmission Date: 20060501
  Serious: Yes (Death, Other)
  Sender: FDA-Public Use
  Company Number: PHEH2005US10522

PATIENT
  Age: 62 Year
  Sex: Male
  Weight: 113 kg

DRUGS (1)
  1. CLOZARIL [Suspect]
     Dosage: UNK, UNK

REACTIONS (12)
  - ACCIDENTAL OVERDOSE [None]
  - ARTERIOSCLEROSIS [None]
  - ARTERIOSCLEROSIS CORONARY ARTERY [None]
  - CARDIAC FAILURE CONGESTIVE [None]
  - CARDIOMEGALY [None]
  - CIRCULATORY COLLAPSE [None]
  - EMPHYSEMA [None]
  - MYOCARDIAL FIBROSIS [None]
  - MYOCARDIAL INFARCTION [None]
  - POISONING [None]
  - PULMONARY OEDEMA [None]
  - SPLENOMEGALY [None]
